FAERS Safety Report 5580158-1 (Version None)
Quarter: 2007Q4

REPORT INFORMATION
  Report Type: 
  Country: None (occurrence: None)
  Receive Date: 20071227
  Receipt Date: 20071227
  Transmission Date: 20080405
  Serious: Yes (Life-Threatening, Hospitalization)
  Sender: FDA-Public Use
  Company Number: None

PATIENT
  Age: 25 Year
  Sex: Male
  Weight: 79.7 kg

DRUGS (9)
  1. CYCLOSPORINE [Suspect]
  2. ACYCLOVIR [Concomitant]
  3. ACTIGALL [Concomitant]
  4. LISINOPRIL [Concomitant]
  5. DAPSONE [Concomitant]
  6. CELLCEPT [Concomitant]
  7. SOLU-MEDROL [Concomitant]
  8. BUDESONIDE [Concomitant]
  9. LANOTIL [Concomitant]

REACTIONS (3)
  - ANXIETY [None]
  - CONFUSIONAL STATE [None]
  - THERAPEUTIC AGENT TOXICITY [None]
